FAERS Safety Report 5414342-4 (Version None)
Quarter: 2007Q3

REPORT INFORMATION
  Report Type: 
  Country: None (occurrence: None)
  Receive Date: 20070814
  Receipt Date: 20070802
  Transmission Date: 20080115
  Serious: Yes (Other)
  Sender: FDA-Public Use
  Company Number: US-PFIZER INC-2007065828

PATIENT
  Sex: Female

DRUGS (2)
  1. CHANTIX [Suspect]
     Dates: start: 20070101, end: 20070730
  2. ZOLOFT [Suspect]

REACTIONS (11)
  - ABNORMAL DREAMS [None]
  - ASTHENIA [None]
  - CRYING [None]
  - DEPRESSION [None]
  - DRY MOUTH [None]
  - FATIGUE [None]
  - FEELING ABNORMAL [None]
  - HOT FLUSH [None]
  - IRRITABILITY [None]
  - NAUSEA [None]
  - NERVOUSNESS [None]
